FAERS Safety Report 4421660-5 (Version None)
Quarter: 2004Q3

REPORT INFORMATION
  Report Type: 
  Country: None (occurrence: None)
  Receive Date: 20040804
  Receipt Date: 20040721
  Transmission Date: 20050211
  Serious: Yes (Other)
  Sender: FDA-Public Use
  Company Number: US013503

PATIENT
  Age: 24 Year
  Sex: Female

DRUGS (4)
  1. GABITRIL [Suspect]
     Indication: ANXIETY
     Dosage: 2 MG ORAL
     Route: 048
     Dates: start: 20040701
  2. PROZAC [Concomitant]
  3. LORAZEPAM [Concomitant]
  4. BIRTH CONTROL PILLS [Concomitant]

REACTIONS (1)
  - GRAND MAL CONVULSION [None]
